FAERS Safety Report 5691158-5 (Version None)
Quarter: 2008Q2

REPORT INFORMATION
  Report Type: 
  Country: None (occurrence: None)
  Receive Date: 20080402
  Receipt Date: 20080327
  Transmission Date: 20081010
  Serious: Yes (Other)
  Sender: FDA-Public Use
  Company Number: FR-SP-E2008-02845

PATIENT
  Age: 20 Year
  Sex: Female
  Weight: 60 kg

DRUGS (3)
  1. TUBERTEST [Suspect]
     Indication: TUBERCULIN TEST
     Route: 023
     Dates: start: 20080219
  2. TUBERTEST [Suspect]
     Route: 023
     Dates: start: 20080219
  3. TUBERTEST [Suspect]
     Route: 023
     Dates: start: 20080219

REACTIONS (3)
  - INJECTION SITE ERYTHEMA [None]
  - MEDICATION ERROR [None]
  - OVERDOSE [None]
